FAERS Safety Report 7362982-8 (Version None)
Quarter: 2011Q1

REPORT INFORMATION
  Report Type: 
  Country: None (occurrence: None)
  Receive Date: 20110321
  Receipt Date: 20110309
  Transmission Date: 20110831
  Serious: Yes (Hospitalization)
  Sender: FDA-Public Use
  Company Number: US-CELGENEUS-163-21880-11022722

PATIENT
  Sex: Female
  Weight: 73 kg

DRUGS (41)
  1. LIDOCAINE [Concomitant]
     Dosage: 5 MILLIGRAM
     Route: 058
     Dates: start: 20101129
  2. RED BLOOD CELLS [Concomitant]
     Dosage: 3 UNITS
     Route: 051
     Dates: start: 20100201, end: 20100201
  3. FOSAMAX [Concomitant]
     Dosage: 70 MILLIGRAM
     Route: 048
     Dates: start: 20101102
  4. ZYRTEC [Concomitant]
     Dosage: 10 MILLIGRAM
     Route: 048
     Dates: start: 20090825
  5. ACYCLOVIR [Concomitant]
     Dosage: 400 MILLIGRAM
     Route: 048
     Dates: start: 20100205
  6. ASPIRIN [Concomitant]
     Dosage: 325 MILLIGRAM
     Route: 048
     Dates: start: 20101129
  7. REGLAN [Concomitant]
     Dosage: 10 MILLIGRAM
     Route: 048
     Dates: start: 20090409
  8. VANCOMYCIN [Concomitant]
     Dosage: 1500 MILLIGRAM
     Route: 051
     Dates: start: 20110222, end: 20110223
  9. K-DUR [Concomitant]
     Dosage: 40 MILLIEQUIVALENTS
     Route: 048
     Dates: start: 20100220, end: 20100220
  10. IMODIUM MULTI-SYMPTOM RELIEF [Concomitant]
     Dosage: 4 MILLIGRAM
     Route: 048
     Dates: start: 20110220, end: 20110220
  11. PEPCID [Concomitant]
     Dosage: 20 MILLIGRAM
     Route: 051
     Dates: start: 20101129
  12. ACETAMINOPHEN [Concomitant]
     Dosage: 650 MILLIGRAM
     Route: 048
     Dates: start: 20101129
  13. BENADRYL [Concomitant]
     Dosage: 25 MILLIGRAM
     Route: 051
     Dates: start: 20101129
  14. TOBRAMCYIN [Concomitant]
     Dosage: 80 MILLIGRAM
     Route: 051
     Dates: start: 20100221, end: 20100223
  15. VANCOMYCIN [Concomitant]
     Dosage: 1000 MILLIGRAM
     Route: 051
     Dates: start: 20110219, end: 20110221
  16. CALCIUM CARBONATE [Concomitant]
     Dosage: 600 MILLIGRAM
     Route: 048
     Dates: start: 20110220, end: 20110220
  17. DECADRON [Suspect]
     Dosage: 40 MILLIGRAM
     Route: 065
     Dates: start: 20101129, end: 20110203
  18. ZOFRAN [Concomitant]
     Dosage: 8 MILLIGRAM
     Route: 051
     Dates: start: 20101129
  19. ACETAMINOPHEN AND CODEINE PHOSPHATE #3 [Concomitant]
     Dosage: 1 TABLET
     Route: 048
     Dates: start: 20091016
  20. REVLIMID [Suspect]
     Indication: MULTIPLE MYELOMA
     Dosage: 10 MILLIGRAM
     Route: 048
     Dates: start: 20101129, end: 20110206
  21. HYDROCHLOROTHIAZIDE [Suspect]
     Dosage: 25 MILLIGRAM
     Route: 048
     Dates: start: 20090825, end: 20110220
  22. DOXIL [Suspect]
     Dosage: 7.2 MILLIGRAM
     Route: 065
     Dates: start: 20101129, end: 20110203
  23. VELCADE [Suspect]
     Dosage: 1.82 MILLIGRAM
     Route: 065
     Dates: start: 20101129, end: 20110203
  24. HEPARIN LOCK-FLUSH [Concomitant]
     Dosage: 500 UNITS
     Route: 051
     Dates: start: 20101129
  25. FERRLECIT [Concomitant]
     Dosage: 125 MILLIGRAM
     Route: 051
     Dates: start: 20101227
  26. LOSARTAN POTASSIUM [Concomitant]
     Dosage: 25 MILLIGRAM
     Route: 048
     Dates: start: 20100223
  27. CALCIUM+D [Concomitant]
     Dosage: 1 TABLET
     Route: 048
     Dates: start: 20110304
  28. MULTIVITAMIN WITH IRON [Concomitant]
     Dosage: 1 TABLET
     Route: 048
     Dates: start: 20090224
  29. PHOS-NAK [Concomitant]
     Dosage: 2 DOSAGE FORMS
     Route: 048
     Dates: start: 20100220, end: 20100220
  30. CALCIUM CARBONATE [Concomitant]
     Dosage: 1200 MILLIGRAM
     Route: 048
     Dates: start: 20110221, end: 20110223
  31. ZITHROMAX [Concomitant]
     Dosage: 500 MILLIGRAM
     Route: 048
     Dates: start: 20110219, end: 20110219
  32. ZITHROMAX [Concomitant]
     Dosage: 1200 MILLIGRAM
     Route: 055
     Dates: start: 20110220, end: 20110223
  33. ACETAMINOPHEN [Concomitant]
     Dosage: 500 MILLIGRAM
     Route: 048
  34. PHOS-NAK [Concomitant]
     Dosage: 1 DOSAGE FORMS
     Route: 048
     Dates: start: 20110221, end: 20110221
  35. ATROVENT [Concomitant]
     Dosage: .5 MILLIGRAM
     Route: 055
     Dates: start: 20110220, end: 20110223
  36. HYDROCHLOROTHIAZIDE [Suspect]
     Dosage: 25 MILLIGRAM
     Route: 048
     Dates: start: 20110221
  37. CALCIUM+D [Concomitant]
     Dosage: 600
     Route: 048
     Dates: start: 20090409, end: 20110303
  38. AUGMENTIN '125' [Concomitant]
     Dosage: 875 MILLIGRAM
     Route: 048
     Dates: start: 20110224, end: 20110227
  39. ALLOPURINOL [Concomitant]
     Dosage: 300 MILLIGRAM
     Route: 048
     Dates: start: 20100316
  40. MIRALAX [Concomitant]
     Dosage: 17 GRAM
     Route: 048
     Dates: start: 20091016
  41. ZOSYN [Concomitant]
     Dosage: 4.5 GRAM
     Route: 051
     Dates: start: 20100219, end: 20100220

REACTIONS (2)
  - SYNCOPE [None]
  - PNEUMONIA [None]
